FAERS Safety Report 8313361 (Version 2)
Quarter: 2013Q1

REPORT INFORMATION
  Report Type: Spontaneous
  Country: US (occurrence: US)
  Receive Date: 20111228
  Receipt Date: 20130226
  Transmission Date: 20140127
  Serious: Yes (Hospitalization)
  Sender: FDA-Public Use
  Company Number: US-US-EMD SERONO, INC.-7103024

PATIENT
  Sex: Female

DRUGS (1)
  1. REBIF [Suspect]
     Indication: PRODUCT USED FOR UNKNOWN INDICATION
     Route: 058
     Dates: start: 20110628, end: 20130124

REACTIONS (6)
  - Blister [Not Recovered/Not Resolved]
  - Fall [Unknown]
  - Local swelling [Recovering/Resolving]
  - Cellulitis [Unknown]
  - Pain [Unknown]
  - Rash [Unknown]
